FAERS Safety Report 18465010 (Version 3)
Quarter: 2020Q4

REPORT INFORMATION
  Report Type: Report from Study
  Country: US (occurrence: US)
  Receive Date: 20201104
  Receipt Date: 20201119
  Transmission Date: 20210114
  Serious: Yes (Hospitalization, Other)
  Sender: FDA-Public Use
  Company Number: US-BRISTOL-MYERS SQUIBB COMPANY-BMS-2020-090644

PATIENT
  Age: 47 Year
  Sex: Female
  Weight: 100.33 kg

DRUGS (2)
  1. BMS-986218. [Suspect]
     Active Substance: BMS-986218
     Indication: PANCREATIC CARCINOMA
     Dosage: 1 DOSAGE FORM
     Route: 042
     Dates: start: 20200810
  2. NIVOLUMAB [Suspect]
     Active Substance: NIVOLUMAB
     Indication: PANCREATIC CARCINOMA
     Dosage: 480 MILLIGRAM
     Route: 042
     Dates: start: 20200810

REACTIONS (3)
  - Gastritis [Recovered/Resolved with Sequelae]
  - Embolism [Recovered/Resolved]
  - Duodenitis [Recovered/Resolved with Sequelae]

NARRATIVE: CASE EVENT DATE: 20201027
